FAERS Safety Report 7167441-3 (Version None)
Quarter: 2010Q4

REPORT INFORMATION
  Report Type: 
  Country: None (occurrence: None)
  Receive Date: 20101216
  Receipt Date: 20091221
  Transmission Date: 20110411
  Serious: No
  Sender: FDA-Public Use
  Company Number: A0836163A

PATIENT
  Age: 26 Year
  Sex: Male

DRUGS (1)
  1. COMMIT [Suspect]
     Dates: start: 20091220, end: 20091220

REACTIONS (2)
  - DYSGEUSIA [None]
  - VOMITING [None]
